FAERS Safety Report 10310474 (Version 2)
Quarter: 2014Q3

REPORT INFORMATION
  Report Type: Report from Study
  Country: US (occurrence: US)
  Receive Date: 20140717
  Receipt Date: 20140717
  Transmission Date: 20150326
  Serious: Yes (Hospitalization, Other)
  Sender: FDA-Public Use
  Company Number: PHEH2014US010441

PATIENT
  Age: 66 Year
  Sex: Female
  Weight: 77.55 kg

DRUGS (37)
  1. VITAMIN B COMPLEX [Concomitant]
     Active Substance: CYANOCOBALAMIN\DEXPANTHENOL\NIACINAMIDE\PYRIDOXINE HYDROCHLORIDE\RIBOFLAVIN 5^-PHOSPHATE SODIUM\THIAMINE HYDROCHLORIDE\VITAMIN B COMPLEX
     Dosage: 1 DF, QD
     Route: 048
  2. DIOVAN [Concomitant]
     Active Substance: VALSARTAN
     Dosage: 80 MG, DAILY
     Route: 048
  3. ATENOLOL. [Concomitant]
     Active Substance: ATENOLOL
     Indication: DYSPNOEA
     Dosage: UNK
     Dates: start: 20090123
  4. ZORTRESS [Suspect]
     Active Substance: EVEROLIMUS
     Indication: LIVER TRANSPLANT
     Dosage: 0.5 MG, BID
     Route: 048
     Dates: start: 20140305
  5. VITAMIN C [Concomitant]
     Active Substance: ASCORBIC ACID
     Dosage: 1 DF, QD
     Route: 048
  6. SODIUM BICARBONATE. [Concomitant]
     Active Substance: SODIUM BICARBONATE
     Dosage: 2 DF, BID
     Route: 048
     Dates: start: 20140526
  7. NORMODYNE [Concomitant]
     Active Substance: LABETALOL HYDROCHLORIDE
     Dosage: 200 MG, BID
     Dates: end: 20140305
  8. METOPROLOL [Concomitant]
     Active Substance: METOPROLOL
     Dosage: UNK
  9. ZORTRESS [Suspect]
     Active Substance: EVEROLIMUS
     Dosage: UNK
     Dates: end: 20140520
  10. LASIX [Concomitant]
     Active Substance: FUROSEMIDE
     Dosage: 40 MG, DAILY
     Route: 048
  11. RAPAMUNE [Concomitant]
     Active Substance: SIROLIMUS
     Dosage: UNK
  12. TRICOR [Concomitant]
     Active Substance: FENOFIBRATE
     Dosage: UNK
  13. VITAMIN B [Concomitant]
     Active Substance: VITAMIN B
     Dosage: UNK UKN, QD
  14. DIVON [Concomitant]
     Dosage: 80 MG, DAILY
     Route: 048
  15. CALCIUM CARBONATE/VITAMIN D3 [Concomitant]
     Dosage: 600 MG, BID
     Route: 048
     Dates: start: 20110509
  16. ARANESP [Concomitant]
     Active Substance: DARBEPOETIN ALFA
     Dosage: UNK, QMO
     Route: 058
  17. MAGNESIUM GLUCONATE [Concomitant]
     Active Substance: MAGNESIUM GLUCONATE
     Dosage: UNK
  18. NYSTATIN. [Concomitant]
     Active Substance: NYSTATIN
     Dosage: UNK
  19. INSULIN [Concomitant]
     Active Substance: INSULIN NOS
     Dosage: UNK
  20. TRIGLIDE [Concomitant]
     Active Substance: FENOFIBRATE
     Dosage: 50 MG, DAILY
     Route: 048
  21. PROGRAF [Concomitant]
     Active Substance: TACROLIMUS\TACROLIMUS ANHYDROUS
     Dosage: 0.5 MG, Q12H
     Route: 048
     Dates: start: 20140514
  22. CELLCEPT [Concomitant]
     Active Substance: MYCOPHENOLATE MOFETIL\MYCOPHENOLATE MOFETIL HYDROCHLORIDE
     Dosage: UNK
  23. BACTRIM [Concomitant]
     Active Substance: SULFAMETHOXAZOLE\TRIMETHOPRIM
     Dosage: UNK
  24. ZORTRESS [Suspect]
     Active Substance: EVEROLIMUS
     Dosage: 0.5 MG, BID
     Route: 048
     Dates: start: 20140320, end: 20140417
  25. GLUCOSAMINE + CHONDROITIN SULFATE [Concomitant]
     Dosage: 4 DF, DAILY
     Route: 048
  26. PROGRAF [Concomitant]
     Active Substance: TACROLIMUS\TACROLIMUS ANHYDROUS
     Dosage: 0.5 MG, Q12H
     Route: 048
     Dates: end: 20140320
  27. PRILOSEC [Concomitant]
     Active Substance: OMEPRAZOLE MAGNESIUM
     Dosage: 20 MG, DAILY
     Route: 048
     Dates: end: 20140305
  28. DAILY VITAMINS [Concomitant]
     Dosage: 1 DF, QD
     Route: 048
  29. MYCOPHENOLATE MOFETIL. [Concomitant]
     Active Substance: MYCOPHENOLATE MOFETIL
     Dosage: UNK
  30. CALCIUM + VITAMIN D3 [Concomitant]
     Dosage: 600 MG, UNK
     Route: 048
  31. GLUCOSAM [Concomitant]
     Dosage: 4 DF, UNK
     Route: 048
  32. ZORTRESS [Suspect]
     Active Substance: EVEROLIMUS
     Dosage: 1.5 MG, DAILY (1 MG AM AND 0.5 MG)
     Route: 048
     Dates: start: 20140417, end: 20140514
  33. ZOCOR [Suspect]
     Active Substance: SIMVASTATIN
     Dosage: UNK
  34. FLUCONAZOLE. [Concomitant]
     Active Substance: FLUCONAZOLE
     Dosage: UNK
  35. POLYSORBATE 20. [Concomitant]
     Active Substance: POLYSORBATE 20
     Dosage: 0.3 ML, UNK
  36. ASPIRIN. [Concomitant]
     Active Substance: ASPIRIN
     Dosage: UNK
  37. FENOFIBRATE. [Concomitant]
     Active Substance: FENOFIBRATE
     Dosage: UNK

REACTIONS (27)
  - Amylase increased [Unknown]
  - Anaemia [Unknown]
  - Blood triglycerides increased [Unknown]
  - Renal failure [Unknown]
  - Blood creatinine increased [Unknown]
  - Facial bones fracture [Unknown]
  - Scar [Unknown]
  - Magnesium metabolism disorder [Unknown]
  - Immunosuppressant drug level decreased [Unknown]
  - Drug ineffective [Unknown]
  - Cerebrovascular accident [Unknown]
  - Hepatic cirrhosis [Unknown]
  - Platelet count decreased [Unknown]
  - Blood sodium decreased [Unknown]
  - Hypertension [Unknown]
  - Fall [Unknown]
  - Blood uric acid increased [Recovered/Resolved]
  - Rash [Unknown]
  - Loss of consciousness [Unknown]
  - Tearfulness [Unknown]
  - Foot fracture [Unknown]
  - Nasopharyngitis [Unknown]
  - Depression [Unknown]
  - Gastrointestinal haemorrhage [Unknown]
  - Hypertriglyceridaemia [Unknown]
  - High density lipoprotein decreased [Unknown]
  - Blood cholesterol increased [Unknown]

NARRATIVE: CASE EVENT DATE: 20140417
